FAERS Safety Report 6821495-X (Version None)
Quarter: 2010Q3

REPORT INFORMATION
  Report Type: 
  Country: None (occurrence: None)
  Receive Date: 20100707
  Receipt Date: 20090516
  Transmission Date: 20110219
  Serious: No
  Sender: FDA-Public Use
  Company Number: US-PFIZER INC-2008152726

PATIENT
  Sex: Male
  Weight: 19.4 kg

DRUGS (3)
  1. SERTRALINE HCL [Suspect]
     Indication: ANXIETY
     Dosage: UNK
     Dates: start: 20081207
  2. MELATONIN [Concomitant]
     Dosage: UNK
  3. ZOLOFT [Suspect]

REACTIONS (3)
  - DYSGEUSIA [None]
  - INCORRECT DOSE ADMINISTERED [None]
  - PSYCHOMOTOR HYPERACTIVITY [None]
